FAERS Safety Report 9705771 (Version 1)
Quarter: 2013Q4

REPORT INFORMATION
  Report Type: Spontaneous
  Country: US (occurrence: US)
  Receive Date: 20131122
  Receipt Date: 20131122
  Transmission Date: 20140711
  Serious: No
  Sender: FDA-Public Use
  Company Number: US-GILEAD-2008-0018034

PATIENT
  Age: 87 Year
  Sex: Female

DRUGS (7)
  1. LETAIRIS [Suspect]
     Indication: PULMONARY ARTERIAL HYPERTENSION
     Route: 048
     Dates: start: 20080816
  2. LASIX [Concomitant]
     Route: 048
  3. WARFARIN [Concomitant]
     Route: 048
  4. KLOR-CON [Concomitant]
     Route: 048
  5. DIGOXIN [Concomitant]
     Route: 048
  6. DIOVAN HCT [Concomitant]
     Route: 048
  7. PROTONIX [Concomitant]
     Route: 048

REACTIONS (3)
  - Chest discomfort [None]
  - Dyspnoea [None]
  - Oedema peripheral [None]
